FAERS Safety Report 18785237 (Version 1)
Quarter: 2021Q1

REPORT INFORMATION
  Report Type: Spontaneous
  Country: DE (occurrence: CN)
  Receive Date: 20210125
  Receipt Date: 20210125
  Transmission Date: 20210419
  Serious: Yes (Hospitalization)
  Sender: FDA-Public Use
  Company Number: CN-ELI_LILLY_AND_COMPANY-CN202101009486

PATIENT
  Age: 39 Year
  Sex: Male
  Weight: 70 kg

DRUGS (4)
  1. PACLITAXEL ALBUMIN [Suspect]
     Active Substance: PACLITAXEL
     Indication: LIP AND/OR ORAL CAVITY CANCER
     Dosage: 200 MG, UNKNOWN
     Route: 041
     Dates: start: 20201213, end: 20201213
  2. SODIUM CHLORIDE. [Concomitant]
     Active Substance: SODIUM CHLORIDE
     Dosage: 40 ML, UNK
     Route: 041
     Dates: start: 20201213, end: 20201213
  3. SODIUM CHLORIDE. [Concomitant]
     Active Substance: SODIUM CHLORIDE
     Indication: LIP AND/OR ORAL CAVITY CANCER
     Dosage: 250 ML
     Route: 041
     Dates: start: 20201213, end: 20201213
  4. ERBITUX [Suspect]
     Active Substance: CETUXIMAB
     Indication: LIP AND/OR ORAL CAVITY CANCER
     Dosage: 400 MG, UNKNOWN
     Route: 041
     Dates: start: 20201213, end: 20201213

REACTIONS (3)
  - White blood cell count decreased [Recovering/Resolving]
  - Platelet count decreased [Recovering/Resolving]
  - Haemoglobin decreased [Recovering/Resolving]

NARRATIVE: CASE EVENT DATE: 20201224
